FAERS Safety Report 5978040-0 (Version None)
Quarter: 2008Q4

REPORT INFORMATION
  Report Type: 
  Country: None (occurrence: None)
  Receive Date: 20081126
  Receipt Date: 20081117
  Transmission Date: 20090506
  Serious: Yes (Life-Threatening)
  Sender: FDA-Public Use
  Company Number: 2006-152306-NL

PATIENT
  Age: 26 Year
  Sex: Female

DRUGS (15)
  1. VECURONIUM BROMIDE [Suspect]
     Indication: GENERAL ANAESTHESIA
     Route: 042
     Dates: start: 20061107, end: 20061107
  2. LACTEC [Concomitant]
  3. PROPOFOL [Concomitant]
  4. FENTANYL CITRATE [Concomitant]
  5. AMINOPHYLLINE [Concomitant]
  6. HESPANDER [Concomitant]
  7. ATROPINE SULFATE [Concomitant]
  8. PROCATEROL HCL [Concomitant]
  9. EPINEPHRINE HYDROCHLORIDE [Concomitant]
  10. VASOPRESSIN INJECTION [Concomitant]
  11. METOCLOPRAMIDE [Concomitant]
  12. CEFAZOLIN SODIUM [Concomitant]
  13. SEVOFLURANE [Concomitant]
  14. ISOTONIC SODIUM CHLORIDE SOLUTION [Concomitant]
  15. METHIMAZOLE [Concomitant]

REACTIONS (5)
  - ANAPHYLACTIC SHOCK [None]
  - CYANOSIS [None]
  - DYSPNOEA [None]
  - ELECTROCARDIOGRAM ST-T SEGMENT DEPRESSION [None]
  - SINUS TACHYCARDIA [None]
